FAERS Safety Report 18992164 (Version 1)
Quarter: 2021Q1

REPORT INFORMATION
  Report Type: Spontaneous
  Country: US (occurrence: US)
  Receive Date: 20210310
  Receipt Date: 20210310
  Transmission Date: 20210420
  Serious: Yes (Other)
  Sender: FDA-Public Use
  Company Number: None

PATIENT
  Age: 77 Year
  Sex: Female
  Weight: 52.2 kg

DRUGS (12)
  1. FENTANYL. [Concomitant]
     Active Substance: FENTANYL
  2. LIDODERM [Concomitant]
     Active Substance: LIDOCAINE
  3. PROBIOTIC [Concomitant]
     Active Substance: PROBIOTICS NOS
  4. COLACE [Concomitant]
     Active Substance: DOCUSATE SODIUM
  5. XANAX [Concomitant]
     Active Substance: ALPRAZOLAM
  6. PROCHLORPERAZINE. [Concomitant]
     Active Substance: PROCHLORPERAZINE
  7. VITAMIN D3 COMPLEX [Concomitant]
  8. CAPECITABINE. [Suspect]
     Active Substance: CAPECITABINE
     Indication: BREAST CANCER
     Route: 048
     Dates: start: 20210203
  9. SENNA LAXATIVE [Concomitant]
     Active Substance: SENNOSIDES
  10. ASPIRIN. [Concomitant]
     Active Substance: ASPIRIN
  11. FLOVENT DISKUS [Concomitant]
     Active Substance: FLUTICASONE PROPIONATE
  12. NORCO [Concomitant]
     Active Substance: ACETAMINOPHEN\HYDROCODONE BITARTRATE

REACTIONS (1)
  - Fatigue [None]

NARRATIVE: CASE EVENT DATE: 20210310
